FAERS Safety Report 8222031-6 (Version None)
Quarter: 2012Q1

REPORT INFORMATION
  Report Type: 
  Country: None (occurrence: None)
  Receive Date: 20120320
  Receipt Date: 20120305
  Transmission Date: 20120608
  Serious: Yes (Other)
  Sender: FDA-Public Use
  Company Number: PL-WATSON-2012-04674

PATIENT
  Age: 30 Year
  Sex: Female

DRUGS (1)
  1. VALPROATE SODIUM [Suspect]
     Indication: CONVULSION
     Dosage: 300 MG, BID
     Route: 065

REACTIONS (7)
  - RAYNAUD'S PHENOMENON [None]
  - NAIL DISCOLOURATION [None]
  - ERYTHEMA [None]
  - SKIN PAPILLOMA [None]
  - CYANOSIS [None]
  - ONYCHOLYSIS [None]
  - CAPILLARY DISORDER [None]
